FAERS Safety Report 13627533 (Version 6)
Quarter: 2019Q3

REPORT INFORMATION
  Report Type: Report from Study
  Country: GB (occurrence: CN)
  Receive Date: 20170608
  Receipt Date: 20190815
  Transmission Date: 20191004
  Serious: Yes (Other)
  Sender: FDA-Public Use
  Company Number: CN-ASTELLAS-2017US022304

PATIENT
  Sex: Male

DRUGS (1)
  1. ERLOTINIB [Suspect]
     Active Substance: ERLOTINIB
     Indication: NON-SMALL CELL LUNG CANCER
     Route: 048
     Dates: start: 20160622

REACTIONS (13)
  - Cough [Unknown]
  - Skin fissures [Unknown]
  - Diarrhoea [Not Recovered/Not Resolved]
  - Blindness [Unknown]
  - Exostosis [Not Recovered/Not Resolved]
  - Blindness [Not Recovered/Not Resolved]
  - Ligament sprain [Unknown]
  - Paronychia [Unknown]
  - Rash [Unknown]
  - Pain in extremity [Unknown]
  - Movement disorder [Unknown]
  - Pruritus generalised [Unknown]
  - Herpes virus infection [Unknown]
